FAERS Safety Report 7331499-9 (Version None)
Quarter: 2011Q1

REPORT INFORMATION
  Report Type: 
  Country: None (occurrence: None)
  Receive Date: 20110224
  Receipt Date: 20110216
  Transmission Date: 20110831
  Serious: Yes (Life-Threatening, Hospitalization)
  Sender: FDA-Public Use
  Company Number: 2011SP007408

PATIENT
  Age: 17 Year
  Sex: Female

DRUGS (1)
  1. VARNOLINE CONTINU (DESOGESTREL/ETHINYLESTRADIOL /00570801/) [Suspect]
     Indication: PRODUCT USED FOR UNKNOWN INDICATION
     Dosage: 1 DF; QD; PO
     Route: 048
     Dates: start: 20101001, end: 20101201

REACTIONS (5)
  - HAEMOPTYSIS [None]
  - DEEP VEIN THROMBOSIS [None]
  - BLOOD PRESSURE SYSTOLIC DECREASED [None]
  - PULMONARY EMBOLISM [None]
  - LUNG DISORDER [None]
